FAERS Safety Report 5033934-8 (Version None)
Quarter: 2006Q2

REPORT INFORMATION
  Report Type: 
  Country: None (occurrence: None)
  Receive Date: 20060623
  Receipt Date: 20060125
  Transmission Date: 20061013
  Serious: Yes (Other)
  Sender: FDA-Public Use
  Company Number: US-MERCK-0601USA03043

PATIENT
  Age: 63 Year
  Sex: Male
  Weight: 96 kg

DRUGS (4)
  1. NIACIN [Concomitant]
     Route: 065
  2. METOPROLOL [Concomitant]
     Route: 065
  3. OMEGA-3 MARINE TRIGLYCERIDES [Concomitant]
     Route: 065
  4. ZOCOR [Suspect]
     Indication: BLOOD CHOLESTEROL INCREASED
     Route: 048
     Dates: start: 20020401

REACTIONS (4)
  - ABDOMINAL PAIN UPPER [None]
  - CARDIAC DISORDER [None]
  - DRUG ADMINISTRATION ERROR [None]
  - MYOCARDIAL INFARCTION [None]
